FAERS Safety Report 7819956-X (Version None)
Quarter: 2011Q4

REPORT INFORMATION
  Report Type: 
  Country: None (occurrence: None)
  Receive Date: 20111018
  Receipt Date: 20110211
  Transmission Date: 20120403
  Serious: No
  Sender: FDA-Public Use
  Company Number: US-ASTRAZENECA-2011SE08358

PATIENT
  Age: 49 Year
  Sex: Female
  Weight: 63.5 kg

DRUGS (4)
  1. THYROID MEDICATION [Concomitant]
  2. SYMBICORT [Suspect]
     Indication: ASTHMA
     Dosage: 80 UG DAILY
     Route: 055
     Dates: start: 20100101, end: 20100601
  3. SYMBICORT [Suspect]
     Dosage: 160 UG DAILY
     Route: 055
     Dates: start: 20101001
  4. DEPAKOTE [Concomitant]

REACTIONS (7)
  - PALPITATIONS [None]
  - PSYCHOMOTOR HYPERACTIVITY [None]
  - DYSPNOEA [None]
  - ASTHMA [None]
  - DRUG DOSE OMISSION [None]
  - WEIGHT INCREASED [None]
  - BLOOD PRESSURE INCREASED [None]
